FAERS Safety Report 9481932 (Version 2)
Quarter: 2013Q4

REPORT INFORMATION
  Report Type: Spontaneous
  Country: US (occurrence: None)
  Receive Date: 20130823
  Receipt Date: 20131028
  Transmission Date: 20140711
  Serious: Yes (Other)
  Sender: FDA-Public Use
  Company Number: ACO_38007_2013

PATIENT
  Age: 70 Year
  Sex: Female

DRUGS (8)
  1. AMPYRA (DALFAMPRIDINE) TABLET, 10MG [Suspect]
     Indication: MULTIPLE SCLEROSIS
     Dates: start: 20130530, end: 20130602
  2. AVONEX (INTERFERON BETA-1A) [Concomitant]
  3. UNIVASC (MOEXIPRIL HYDROCHLORIDE) [Concomitant]
  4. TOPROL XL (METOPROLOL SUCCINATE) [Concomitant]
  5. WELLBUTRIN XL (BUPROPION HYDROCHLORIDE) [Concomitant]
  6. TRAZODONE (TRAZODONE) [Concomitant]
  7. HYDROCHLOROTHIAZID (HYDROCHLOROTHIAZIDE) [Concomitant]
  8. ZOCOR (SIMVASTATIN) [Concomitant]

REACTIONS (4)
  - Rash [None]
  - Blood pressure increased [None]
  - Heart rate increased [None]
  - Dizziness [None]
